FAERS Safety Report 4527139-4 (Version None)
Quarter: 2004Q4

REPORT INFORMATION
  Report Type: 
  Country: None (occurrence: None)
  Receive Date: 20041110
  Receipt Date: 20030418
  Transmission Date: 20050328
  Serious: Yes (Other)
  Sender: FDA-Public Use
  Company Number: CHPA2003US01406

PATIENT
  Age: 48 Year
  Sex: Male
  Weight: 76.2 kg

DRUGS (6)
  1. CONTROL STEP 1 21 MG (NCH) (NICOTINE) TRANS-THERAPEUTIC-SYSTEM [Suspect]
     Indication: SMOKING CESSATION THERAPY
     Dosage: 1 PATCH QD, TRANSDERMAL
     Route: 062
     Dates: start: 20030416, end: 20030417
  2. TRIMOX [Concomitant]
  3. DIAZEPAM [Concomitant]
  4. TEMAZEPAM [Concomitant]
  5. IBUPROFEN [Concomitant]
  6. PROZAC [Concomitant]

REACTIONS (8)
  - APPLICATION SITE PAIN [None]
  - CHEST DISCOMFORT [None]
  - DIZZINESS [None]
  - DYSPNOEA [None]
  - HYPERSENSITIVITY [None]
  - PHARYNGEAL OEDEMA [None]
  - THROAT IRRITATION [None]
  - WHEEZING [None]
